FAERS Safety Report 25832964 (Version 2)
Quarter: 2025Q3

REPORT INFORMATION
  Report Type: Spontaneous
  Country: CH (occurrence: CH)
  Receive Date: 20250922
  Receipt Date: 20250924
  Transmission Date: 20251021
  Serious: Yes (Life-Threatening, Hospitalization)
  Sender: ROCHE
  Company Number: CH-BoehringerIngelheim-2025-BI-094199

PATIENT
  Age: 76 Year
  Sex: Female
  Weight: 89 kg

DRUGS (4)
  1. METALYSE [Suspect]
     Active Substance: TENECTEPLASE
     Indication: Ischaemic cerebral infarction
     Route: 042
     Dates: start: 20250908, end: 20250908
  2. METALYSE [Suspect]
     Active Substance: TENECTEPLASE
     Indication: Arterial occlusive disease
     Route: 065
  3. LISINOPRIL [Suspect]
     Active Substance: LISINOPRIL
     Indication: Hypertension
     Route: 065
  4. SODIUM CHLORIDE [Concomitant]
     Active Substance: SODIUM CHLORIDE
     Indication: Thrombolysis
     Dates: start: 20250908, end: 20250908

REACTIONS (2)
  - Oedema mouth [Recovered/Resolved]
  - Tongue oedema [Recovered/Resolved]

NARRATIVE: CASE EVENT DATE: 20250908
